FAERS Safety Report 21804416 (Version 2)
Quarter: 2023Q1

REPORT INFORMATION
  Report Type: Spontaneous
  Country: US (occurrence: US)
  Receive Date: 20230102
  Receipt Date: 20230209
  Transmission Date: 20230417
  Serious: Yes (Other)
  Sender: FDA-Public Use
  Company Number: US-BRISTOL-MYERS SQUIBB COMPANY-2022-160809

PATIENT
  Age: 83 Year
  Sex: Female

DRUGS (1)
  1. SPRYCEL [Suspect]
     Active Substance: DASATINIB
     Indication: Chronic myeloid leukaemia
     Route: 048
     Dates: start: 20161018

REACTIONS (5)
  - Anaemia [Unknown]
  - Neoplasm malignant [Unknown]
  - Dyspnoea [Recovered/Resolved]
  - Oedema genital [Recovered/Resolved]
  - Urinary hesitation [Recovered/Resolved]
